FAERS Safety Report 10607852 (Version 1)
Quarter: 2014Q4

REPORT INFORMATION
  Report Type: Spontaneous
  Country: US (occurrence: US)
  Receive Date: 20141125
  Receipt Date: 20141125
  Transmission Date: 20150529
  Serious: No
  Sender: FDA-Public Use
  Company Number: US-PFIZER INC-2014319806

PATIENT
  Age: 82 Year
  Sex: Female
  Weight: 69.39 kg

DRUGS (13)
  1. CLONIDINE HYDROCHLORIDE. [Concomitant]
     Active Substance: CLONIDINE HYDROCHLORIDE
  2. AZITHROMYCIN [Concomitant]
     Active Substance: AZITHROMYCIN ANHYDROUS
  3. VENTOLIN [Concomitant]
     Active Substance: ALBUTEROL SULFATE
  4. OMEPRAZOLE. [Suspect]
     Active Substance: OMEPRAZOLE
     Dosage: 20 MG, DAILY
     Dates: start: 2007, end: 201301
  5. AMLODIPINE [Concomitant]
     Active Substance: AMLODIPINE BESYLATE
  6. COMPAZINE [Suspect]
     Active Substance: PROCHLORPERAZINE MALEATE
  7. ACETYLCYSTEINE. [Concomitant]
     Active Substance: ACETYLCYSTEINE
  8. LEVAQUIN [Suspect]
     Active Substance: LEVOFLOXACIN
  9. OXYGEN. [Concomitant]
     Active Substance: OXYGEN
  10. PREDNISONE. [Concomitant]
     Active Substance: PREDNISONE
     Indication: ARTHROPATHY
  11. SULFASALAZINE. [Suspect]
     Active Substance: SULFASALAZINE
     Indication: RHEUMATOID ARTHRITIS
     Dosage: UNK
  12. SYNVISC [Concomitant]
     Active Substance: HYALURONATE SODIUM
  13. XANAX [Concomitant]
     Active Substance: ALPRAZOLAM

REACTIONS (3)
  - Rash generalised [Unknown]
  - Drug hypersensitivity [Unknown]
  - Drug ineffective [Unknown]
